FAERS Safety Report 6490744-2 (Version None)
Quarter: 2009Q4

REPORT INFORMATION
  Report Type: 
  Country: None (occurrence: None)
  Receive Date: 20091211
  Receipt Date: 20091130
  Transmission Date: 20100525
  Serious: Yes (Other)
  Sender: FDA-Public Use
  Company Number: CH-ROCHE-671823

PATIENT
  Age: 47 Year
  Sex: Female

DRUGS (10)
  1. MYCOPHENOLATE MOFETIL [Suspect]
     Indication: IMMUNOSUPPRESSION
     Route: 065
  2. MYCOPHENOLATE MOFETIL [Suspect]
     Dosage: REDUCED
     Route: 065
  3. CYCLOSPORINE [Suspect]
     Indication: IMMUNOSUPPRESSION
     Route: 065
  4. CYCLOSPORINE [Suspect]
     Dosage: REDUCED
     Route: 065
  5. PREDNISONE TAB [Suspect]
     Indication: IMMUNOSUPPRESSION
     Route: 065
  6. PREDNISONE TAB [Suspect]
     Dosage: REDUCED
     Route: 065
  7. PREDNISONE TAB [Suspect]
     Route: 065
  8. TACROLIMUS [Suspect]
     Indication: IMMUNOSUPPRESSION
     Route: 065
     Dates: start: 20001101
  9. SIROLIMUS [Suspect]
     Indication: IMMUNOSUPPRESSION
     Route: 065
     Dates: start: 20001101
  10. AZATHIOPRINE [Suspect]
     Indication: IMMUNOSUPPRESSION
     Route: 065
     Dates: start: 20001101, end: 20001201

REACTIONS (11)
  - DRUG TOXICITY [None]
  - HAEMATOMA [None]
  - HIRSUTISM [None]
  - HYPERALDOSTERONISM [None]
  - LEUKOPENIA [None]
  - OEDEMA [None]
  - POLYOMAVIRUS-ASSOCIATED NEPHROPATHY [None]
  - RENAL HYPERTENSION [None]
  - RENIN INCREASED [None]
  - TRANSPLANT REJECTION [None]
  - WOUND [None]
